FAERS Safety Report 11721811 (Version 6)
Quarter: 2016Q4

REPORT INFORMATION
  Report Type: Spontaneous
  Country: US (occurrence: US)
  Receive Date: 20151111
  Receipt Date: 20161110
  Transmission Date: 20170206
  Serious: Yes (Hospitalization, Other)
  Sender: FDA-Public Use
  Company Number: US-JNJFOC-20151002869

PATIENT
  Age: 75 Year
  Sex: Female

DRUGS (5)
  1. ASPIRIN. [Suspect]
     Active Substance: ASPIRIN
     Indication: PRODUCT USED FOR UNKNOWN INDICATION
     Route: 065
  2. PLAVIX [Suspect]
     Active Substance: CLOPIDOGREL BISULFATE
     Indication: PRODUCT USED FOR UNKNOWN INDICATION
     Route: 065
  3. XARELTO [Suspect]
     Active Substance: RIVAROXABAN
     Indication: DEEP VEIN THROMBOSIS
     Route: 048
     Dates: start: 20140416, end: 20150416
  4. COUMADIN [Suspect]
     Active Substance: WARFARIN SODIUM
     Indication: PRODUCT USED FOR UNKNOWN INDICATION
     Route: 065
  5. XARELTO [Suspect]
     Active Substance: RIVAROXABAN
     Indication: THROMBOSIS
     Route: 048
     Dates: start: 20140416, end: 20150416

REACTIONS (4)
  - Deep vein thrombosis [Unknown]
  - Dementia [Unknown]
  - Haemorrhage [Unknown]
  - Gastrointestinal haemorrhage [Unknown]

NARRATIVE: CASE EVENT DATE: 20140509
